FAERS Safety Report 23222822 (Version 1)
Quarter: 2023Q4

REPORT INFORMATION
  Report Type: Spontaneous
  Country: CN (occurrence: CN)
  Receive Date: 20231123
  Receipt Date: 20231123
  Transmission Date: 20240110
  Serious: Yes (Other)
  Sender: FDA-Public Use
  Company Number: None

PATIENT
  Age: 45 Year
  Sex: Female
  Weight: 66 kg

DRUGS (6)
  1. CYCLOPHOSPHAMIDE [Suspect]
     Active Substance: CYCLOPHOSPHAMIDE
     Indication: Adenocarcinoma
     Dosage: 1.1 G, ONE TIME IN ONE DAY, D1, DILUTED WITH 50 ML OF 0.9% SODIUM CHLORIDE
     Route: 041
     Dates: start: 20230926, end: 20230926
  2. CYCLOPHOSPHAMIDE [Suspect]
     Active Substance: CYCLOPHOSPHAMIDE
     Indication: Breast cancer female
  3. SODIUM CHLORIDE [Suspect]
     Active Substance: SODIUM CHLORIDE
     Indication: Vehicle solution use
     Dosage: 0.9% 50 ML, ONE TIME IN ONE DAY, D1, USED TO DILUTE 1.1 G OF CYCLOPHOSPHAMIDE
     Route: 041
     Dates: start: 20230926, end: 20230926
  4. DEXTROSE [Suspect]
     Active Substance: DEXTROSE\DEXTROSE MONOHYDRATE
     Indication: Vehicle solution use
     Dosage: 5% 750 ML, ONE TIME IN ONE DAY, D1, USED TO DILUTE 55 MG OF DOXORUBICIN
     Route: 041
     Dates: start: 20230926, end: 20230926
  5. DOXORUBICIN HYDROCHLORIDE [Suspect]
     Active Substance: DOXORUBICIN HYDROCHLORIDE
     Indication: Adenocarcinoma
     Dosage: 55 MG, ONE TIME IN ONE DAY, D1, DILUTED WITH 750 ML OF 5% GLUCOSE, (SELF PREPARED)
     Route: 041
     Dates: start: 20230926, end: 20230926
  6. DOXORUBICIN HYDROCHLORIDE [Suspect]
     Active Substance: DOXORUBICIN HYDROCHLORIDE
     Indication: Breast cancer female

REACTIONS (1)
  - Liver injury [Unknown]

NARRATIVE: CASE EVENT DATE: 20231026
